FAERS Safety Report 12461789 (Version 1)
Quarter: 2016Q2

REPORT INFORMATION
  Report Type: Spontaneous
  Country: US (occurrence: US)
  Receive Date: 20160613
  Receipt Date: 20160613
  Transmission Date: 20160815
  Serious: No
  Sender: FDA-Public Use
  Company Number: US-ACTELION-A-US2016-136918

PATIENT
  Age: 89 Year
  Sex: Male

DRUGS (1)
  1. VALCHLOR [Suspect]
     Active Substance: MECHLORETHAMINE
     Indication: MYCOSIS FUNGOIDES
     Dosage: UNK, TWICE PER WEEK
     Route: 061
     Dates: start: 20160426

REACTIONS (3)
  - Application site reaction [Unknown]
  - Application site pruritus [Unknown]
  - Underdose [Unknown]
